FAERS Safety Report 8093541-X (Version None)
Quarter: 2012Q1

REPORT INFORMATION
  Report Type: 
  Country: None (occurrence: None)
  Receive Date: 20120129
  Receipt Date: 20111017
  Transmission Date: 20120608
  Serious: No
  Sender: FDA-Public Use
  Company Number: US-ABBOTT-11P-163-0865682-00

PATIENT
  Sex: Female
  Weight: 75.818 kg

DRUGS (13)
  1. VITAMIN D [Concomitant]
     Indication: PRODUCT USED FOR UNKNOWN INDICATION
     Route: 048
     Dates: start: 20110320, end: 20110913
  2. HUMIRA [Suspect]
     Indication: RHEUMATOID ARTHRITIS
     Route: 050
     Dates: start: 20101219, end: 20110913
  3. SUDAFED 12 HOUR [Concomitant]
     Indication: SINUS CONGESTION
     Dosage: 2 PILL
     Route: 048
     Dates: start: 20110701, end: 20110913
  4. CAFFEINE CITRATE [Concomitant]
     Indication: PRODUCT USED FOR UNKNOWN INDICATION
     Dosage: 4 SERVINGS
     Route: 048
     Dates: start: 20110819, end: 20110913
  5. SYNTHROID [Concomitant]
     Indication: THYROIDECTOMY
     Route: 048
     Dates: start: 20101219, end: 20110414
  6. EXTRA STRENGTH TYLENOL [Concomitant]
     Indication: HEADACHE
     Dosage: 2 PILLS, AT NIGHT
     Route: 048
     Dates: start: 20101219, end: 20110913
  7. TEA [Concomitant]
     Indication: PRODUCT USED FOR UNKNOWN INDICATION
     Dosage: ICED TEA, ONE SERVING
     Route: 048
     Dates: start: 20101219, end: 20110913
  8. ALLEGRA [Concomitant]
     Indication: HYPERSENSITIVITY
     Route: 048
     Dates: start: 20101219, end: 20110414
  9. MULTI-VITAMINS [Concomitant]
     Indication: PRODUCT USED FOR UNKNOWN INDICATION
     Route: 048
     Dates: start: 20110214, end: 20110913
  10. COFFEE [Concomitant]
     Indication: PRODUCT USED FOR UNKNOWN INDICATION
     Dosage: 1 SERVING
     Route: 048
     Dates: start: 20101219, end: 20110913
  11. SYNTHROID [Concomitant]
     Dates: end: 20110806
  12. DHA [Concomitant]
     Indication: PRODUCT USED FOR UNKNOWN INDICATION
     Route: 048
     Dates: start: 20110214, end: 20110913
  13. SYNTHROID [Concomitant]
     Route: 048
     Dates: start: 20110807, end: 20110913

REACTIONS (2)
  - SINUS CONGESTION [None]
  - HEADACHE [None]
